FAERS Safety Report 12679873 (Version 1)
Quarter: 2016Q3

REPORT INFORMATION
  Report Type: Spontaneous
  Country: US (occurrence: US)
  Receive Date: 20160824
  Receipt Date: 20160824
  Transmission Date: 20161109
  Serious: No
  Sender: FDA-Public Use
  Company Number: US-JNJFOC-20160616819

PATIENT
  Sex: Male
  Weight: 99.79 kg

DRUGS (6)
  1. HALDOL [Suspect]
     Active Substance: HALOPERIDOL
     Indication: MENTAL DISORDER
     Route: 065
     Dates: end: 201601
  2. RISPERDAL [Suspect]
     Active Substance: RISPERIDONE
     Indication: PRODUCT USED FOR UNKNOWN INDICATION
     Route: 065
     Dates: start: 2014, end: 201601
  3. MOTRIN [Concomitant]
     Active Substance: IBUPROFEN
     Route: 065
  4. ADVIL [Concomitant]
     Active Substance: IBUPROFEN
     Indication: HEADACHE
     Route: 065
  5. TRAZODONE [Suspect]
     Active Substance: TRAZODONE HYDROCHLORIDE
     Indication: INSOMNIA
     Dosage: AT A DOSE OOF 5-10 MG, ONE TO TWO TIMES A DAY.
     Route: 065
     Dates: end: 2016
  6. TYLENOL [Concomitant]
     Active Substance: ACETAMINOPHEN
     Indication: HEADACHE
     Route: 065

REACTIONS (6)
  - Treatment noncompliance [Unknown]
  - Acne [Not Recovered/Not Resolved]
  - Rash [Not Recovered/Not Resolved]
  - Motion sickness [Unknown]
  - Scar [Not Recovered/Not Resolved]
  - Skin discolouration [Not Recovered/Not Resolved]

NARRATIVE: CASE EVENT DATE: 2016
